FAERS Safety Report 5419430-4 (Version None)
Quarter: 2007Q3

REPORT INFORMATION
  Report Type: 
  Country: None (occurrence: None)
  Receive Date: 20070820
  Receipt Date: 20070820
  Transmission Date: 20080115
  Serious: Yes (Hospitalization)
  Sender: FDA-Public Use
  Company Number: B0476347A

PATIENT
  Age: 44 Year
  Sex: Male

DRUGS (9)
  1. AVANDIA [Suspect]
     Route: 048
     Dates: start: 20070201, end: 20070621
  2. RAMIPRIL [Concomitant]
  3. ATORVASTATIN CALCIUM [Concomitant]
  4. CLOPIDOGREL [Concomitant]
  5. GTN-S [Concomitant]
  6. METOPROLOL SUCCINATE [Concomitant]
  7. METFORMIN HCL [Concomitant]
  8. PANTOPRAZOLE SODIUM [Concomitant]
  9. MIXTARD HUMAN 70/30 [Concomitant]

REACTIONS (1)
  - HEPATITIS ACUTE [None]
